FAERS Safety Report 14092313 (Version 1)
Quarter: 2017Q4

REPORT INFORMATION
  Report Type: Report from Study
  Country: US (occurrence: US)
  Receive Date: 20171016
  Receipt Date: 20171016
  Transmission Date: 20180321
  Serious: Yes (Other)
  Sender: FDA-Public Use
  Company Number: US-CIPLA (EU) LIMITED-2017US18112

PATIENT

DRUGS (5)
  1. CARBOPLATIN. [Suspect]
     Active Substance: CARBOPLATIN
     Indication: NON-SMALL CELL LUNG CANCER
     Dosage: 5 AUC, DAY 1 EVERY 21 DAYS FOR 4 CYCLES
     Route: 042
  2. METFORMIN [Suspect]
     Active Substance: METFORMIN HYDROCHLORIDE
     Dosage: 1000 MG QAM + 500 MG QPM DAYS 8-14
     Route: 048
  3. METFORMIN [Suspect]
     Active Substance: METFORMIN HYDROCHLORIDE
     Indication: NON-SMALL CELL LUNG CANCER
     Dosage: 500 MG, BID(ON DAYS 1-7 BEGINNING ON THE FIRST DAY OF CYCLE 1 OF CHEMOTHERAPY C1D1)
     Route: 048
  4. PEMETREXED. [Suspect]
     Active Substance: PEMETREXED
     Indication: NON-SMALL CELL LUNG CANCER
     Dosage: 500 MG/M2, DAY 1 EVERY 21 DAYS FOR 4 CYCLES
     Route: 042
  5. METFORMIN [Suspect]
     Active Substance: METFORMIN HYDROCHLORIDE
     Dosage: 1000 MG, BID (UNTIL PROGRESSION OF DISEASE)
     Route: 048

REACTIONS (1)
  - Therapy partial responder [Unknown]
